FAERS Safety Report 5363964-8 (Version None)
Quarter: 2007Q2

REPORT INFORMATION
  Report Type: 
  Country: None (occurrence: None)
  Receive Date: 20070530
  Receipt Date: 20070109
  Transmission Date: 20071010
  Serious: No
  Sender: FDA-Public Use
  Company Number: 2007PV028039

PATIENT
  Age: 53 Year
  Sex: Female
  Weight: 124.7392 kg

DRUGS (5)
  1. BYETTA [Suspect]
     Indication: DIABETES MELLITUS NON-INSULIN-DEPENDENT
     Dosage: 5 MCG;BID;SC
     Route: 058
     Dates: start: 20061219, end: 20061227
  2. LANTUS [Concomitant]
  3. THYROID TAB [Concomitant]
  4. SYNTHROID [Concomitant]
  5. JANUVIA [Concomitant]

REACTIONS (5)
  - BLOOD PRESSURE INCREASED [None]
  - DYSPNOEA [None]
  - HEADACHE [None]
  - INJECTION SITE PRURITUS [None]
  - URTICARIA GENERALISED [None]
